FAERS Safety Report 6653160-6 (Version None)
Quarter: 2010Q1

REPORT INFORMATION
  Report Type: 
  Country: None (occurrence: None)
  Receive Date: 20100326
  Receipt Date: 20100315
  Transmission Date: 20100710
  Serious: No
  Sender: FDA-Public Use
  Company Number: US-B.I. PHARMACEUTICALS,INC./RIDGEFIELD-2010-BP-03058BP

PATIENT
  Sex: Male

DRUGS (8)
  1. SPIRIVA [Suspect]
     Indication: CHRONIC OBSTRUCTIVE PULMONARY DISEASE
     Dosage: 18 MCG
     Route: 055
     Dates: start: 20090101
  2. VENTOLIN [Concomitant]
     Indication: CHRONIC OBSTRUCTIVE PULMONARY DISEASE
  3. ASPIRIN [Concomitant]
     Indication: CORONARY ARTERIAL STENT INSERTION
  4. CARDIZEM [Concomitant]
     Indication: CORONARY ARTERIAL STENT INSERTION
  5. DOXAZOSIN [Concomitant]
     Indication: PROSTATOMEGALY
  6. SIMVASTATIN [Concomitant]
     Indication: CORONARY ARTERIAL STENT INSERTION
  7. NORVASC [Concomitant]
     Indication: CORONARY ARTERIAL STENT INSERTION
  8. LANOXIN [Concomitant]
     Indication: CORONARY ARTERIAL STENT INSERTION

REACTIONS (1)
  - WHEEZING [None]
